FAERS Safety Report 10020023 (Version 2)
Quarter: 2014Q1

REPORT INFORMATION
  Report Type: Spontaneous
  Country: DE (occurrence: CR)
  Receive Date: 20140318
  Receipt Date: 20140326
  Transmission Date: 20141002
  Serious: Yes (Death, Hospitalization)
  Sender: FDA-Public Use
  Company Number: DE-ACTELION-A-US2014-96313

PATIENT
  Age: 45 Year
  Sex: Male

DRUGS (6)
  1. VENTAVIS BAYER SCHERING [Suspect]
     Indication: PULMONARY HYPERTENSION
     Route: 055
  2. WARFARIN [Concomitant]
  3. SILDENAFIL [Concomitant]
  4. SPIRONOLACTONE [Concomitant]
  5. FUROSEMIDE [Concomitant]
  6. OXYGEN [Concomitant]

REACTIONS (3)
  - Sepsis [Fatal]
  - Thrombosis mesenteric vessel [Fatal]
  - Abdominal pain [Unknown]
